FAERS Safety Report 7904913-5 (Version None)
Quarter: 2011Q4

REPORT INFORMATION
  Report Type: 
  Country: None (occurrence: None)
  Receive Date: 20111109
  Receipt Date: 20111107
  Transmission Date: 20120403
  Serious: Yes (Other)
  Sender: FDA-Public Use
  Company Number: US-PFIZER INC-2011253028

PATIENT
  Sex: Female

DRUGS (4)
  1. COPAXONE [Suspect]
     Dosage: UNK
  2. AVONEX [Suspect]
     Dosage: UNK
  3. SOLU-MEDROL [Suspect]
     Indication: MULTIPLE SCLEROSIS
     Dosage: UNK
     Route: 042
     Dates: start: 20051021, end: 20071230
  4. PREDNISONE [Concomitant]
     Dosage: UNK

REACTIONS (6)
  - BLOOD PRESSURE INCREASED [None]
  - SKIN DISORDER [None]
  - INFLUENZA LIKE ILLNESS [None]
  - WEIGHT INCREASED [None]
  - SYNCOPE [None]
  - FEELING ABNORMAL [None]
